FAERS Safety Report 17027986 (Version 1)
Quarter: 2019Q4

REPORT INFORMATION
  Report Type: Spontaneous
  Country: US (occurrence: US)
  Receive Date: 20191010
  Receipt Date: 20191010
  Transmission Date: 20200122
  Serious: No
  Sender: FDA-Public Use
  Company Number: None

PATIENT
  Age: 50 Year
  Sex: Female

DRUGS (1)
  1. AUBAGIO [Suspect]
     Active Substance: TERIFLUNOMIDE
     Route: 048
     Dates: start: 201909

REACTIONS (6)
  - Diarrhoea [None]
  - Nasal congestion [None]
  - Migraine [None]
  - Fatigue [None]
  - Oropharyngeal pain [None]
  - Hair growth abnormal [None]

NARRATIVE: CASE EVENT DATE: 20191010
